FAERS Safety Report 4602781-0 (Version None)
Quarter: 2005Q1

REPORT INFORMATION
  Report Type: 
  Country: None (occurrence: None)
  Receive Date: 20050309
  Receipt Date: 20050226
  Transmission Date: 20050727
  Serious: Yes (Hospitalization)
  Sender: FDA-Public Use
  Company Number: GB-JNJFOC-20050300285

PATIENT
  Age: 93 Year

DRUGS (4)
  1. CONCERTA [Suspect]
     Indication: ATTENTION DEFICIT/HYPERACTIVITY DISORDER
     Route: 049
     Dates: start: 19990101, end: 20041103
  2. RITALIN [Suspect]
     Indication: ATTENTION DEFICIT/HYPERACTIVITY DISORDER
     Route: 065
  3. MELATONIN [Concomitant]
     Indication: ATTENTION DEFICIT/HYPERACTIVITY DISORDER
     Route: 049
  4. MELATONIN [Concomitant]
     Indication: SLEEP DISORDER
     Dosage: 3-6MG
     Route: 049

REACTIONS (1)
  - PERITONEAL NEOPLASM [None]
